FAERS Safety Report 4876134-4 (Version None)
Quarter: 2006Q1

REPORT INFORMATION
  Report Type: 
  Country: None (occurrence: None)
  Receive Date: 20060106
  Receipt Date: 20060106
  Transmission Date: 20060701
  Serious: Yes (Other)
  Sender: FDA-Public Use
  Company Number: None

PATIENT

DRUGS (4)
  1. CITALOPRAM 40 MG [Suspect]
     Indication: DEPRESSION
     Dosage: 40 MG PO QD
     Route: 048
     Dates: start: 20050201
  2. CITALOPRAM 40 MG [Suspect]
     Indication: DEPRESSION
     Dosage: 40 MG PO QD
     Route: 048
     Dates: start: 20050401
  3. CITALOPRAM 40 MG [Suspect]
     Indication: DEPRESSION
     Dosage: 40 MG PO QD
     Route: 048
     Dates: start: 20051201
  4. CITALOPRAM 40 MG INWOOD [Suspect]
     Indication: DEPRESSION
     Dosage: 40 MG PO QD
     Route: 048
     Dates: start: 20051213

REACTIONS (2)
  - DRUG INEFFECTIVE [None]
  - PHARMACEUTICAL PRODUCT COMPLAINT [None]
